FAERS Safety Report 5914914-4 (Version None)
Quarter: 2008Q4

REPORT INFORMATION
  Report Type: 
  Country: None (occurrence: None)
  Receive Date: 20081010
  Receipt Date: 20081010
  Transmission Date: 20090506
  Serious: Yes (Hospitalization)
  Sender: FDA-Public Use
  Company Number: PHEH1999US05413

PATIENT
  Sex: Female
  Weight: 67 kg

DRUGS (16)
  1. MYCOPHENOLIC ACID [Suspect]
     Dosage: 720 MG, BID
     Route: 048
     Dates: start: 19991016, end: 19991122
  2. NEORAL [Suspect]
     Dosage: UNSPECIFIED
     Route: 048
  3. PREDNISONE [Suspect]
     Route: 048
     Dates: start: 19991112
  4. GANCICLOVIR [Concomitant]
  5. CLOTRIMAZOLE [Concomitant]
  6. VICODIN [Concomitant]
  7. ESTROGENIC SUBSTANCE [Concomitant]
  8. LORATADINE [Concomitant]
  9. IRON POLYSACCHARIDE (IRON PREPARATIONS) [Concomitant]
  10. LANSOPRAZOLE [Concomitant]
  11. CALCITRIOL [Concomitant]
  12. MULTI-VITAMINS [Concomitant]
  13. ALLOPURINOL [Concomitant]
  14. CALCIUM [Concomitant]
  15. PENTAMIDINE [Concomitant]
  16. ALBUTEROL [Concomitant]

REACTIONS (2)
  - GASTROENTERITIS [None]
  - POST PROCEDURAL COMPLICATION [None]
